FAERS Safety Report 9409928 (Version 1)
Quarter: 2013Q3

REPORT INFORMATION
  Report Type: Spontaneous
  Country: US (occurrence: US)
  Receive Date: 20130719
  Receipt Date: 20130719
  Transmission Date: 20140515
  Serious: Yes (Other)
  Sender: FDA-Public Use
  Company Number: US-FRI-1000046797

PATIENT
  Age: 64 Year
  Sex: Female

DRUGS (11)
  1. LINZESS [Suspect]
  2. PHENERGAN [Concomitant]
  3. XANAX [Concomitant]
  4. SINGULAIR [Concomitant]
  5. VITAMIN B-12 [Concomitant]
  6. BIOTIN [Concomitant]
  7. ESTRACE [Concomitant]
  8. SYNTHROID [Concomitant]
  9. NASONEX [Concomitant]
  10. GLUCOSAMINE [Concomitant]
  11. BENTYL [Concomitant]

REACTIONS (2)
  - Diarrhoea [Unknown]
  - Diverticulitis [Unknown]
